FAERS Safety Report 5309578-7 (Version None)
Quarter: 2007Q2

REPORT INFORMATION
  Report Type: 
  Country: None (occurrence: None)
  Receive Date: 20070425
  Receipt Date: 20070425
  Transmission Date: 20071010
  Serious: Yes (Hospitalization)
  Sender: FDA-Public Use
  Company Number: None

PATIENT
  Age: 60 Year
  Sex: Female
  Weight: 68 kg

DRUGS (10)
  1. AMANTADINE HCL [Suspect]
     Indication: EXTRAPYRAMIDAL DISORDER
     Dosage: 200MG PO BID
     Route: 048
     Dates: start: 20070205, end: 20070217
  2. FLUDROCORTISONE ACETATE [Concomitant]
  3. GABAPENTIN [Concomitant]
  4. HALDOL [Concomitant]
  5. INSULIN [Concomitant]
  6. LISINOPRIL [Concomitant]
  7. LORAZEPAM [Concomitant]
  8. METFORMIN HCL [Concomitant]
  9. OLANZAPINE [Concomitant]
  10. PHENYTOIN [Concomitant]

REACTIONS (7)
  - AGGRESSION [None]
  - DEHYDRATION [None]
  - MENTAL STATUS CHANGES [None]
  - MOVEMENT DISORDER [None]
  - SCREAMING [None]
  - URINARY INCONTINENCE [None]
  - URINARY TRACT INFECTION [None]
